FAERS Safety Report 5929216-X (Version None)
Quarter: 2008Q4

REPORT INFORMATION
  Report Type: 
  Country: None (occurrence: None)
  Receive Date: 20081023
  Receipt Date: 20081023
  Transmission Date: 20090506
  Serious: Yes (Other)
  Sender: FDA-Public Use
  Company Number: None

PATIENT
  Age: 9 Year
  Sex: Female
  Weight: 19.5047 kg

DRUGS (1)
  1. VYVANSE [Suspect]
     Indication: ATTENTION DEFICIT/HYPERACTIVITY DISORDER
     Dosage: ONE CAP ONLY ONCE- PO
     Route: 048
     Dates: start: 20081001, end: 20081001

REACTIONS (8)
  - CHROMATOPSIA [None]
  - CRYING [None]
  - FEELING ABNORMAL [None]
  - HALLUCINATION, VISUAL [None]
  - ILL-DEFINED DISORDER [None]
  - MOVEMENT DISORDER [None]
  - MYDRIASIS [None]
  - PARAESTHESIA [None]
